FAERS Safety Report 13757996 (Version 1)
Quarter: 2017Q3

REPORT INFORMATION
  Report Type: Spontaneous
  Country: US (occurrence: US)
  Receive Date: 20170717
  Receipt Date: 20170717
  Transmission Date: 20171127
  Serious: No
  Sender: FDA-Public Use
  Company Number: US-TEVA-776462ACC

PATIENT
  Sex: Female

DRUGS (1)
  1. ESOMEPRAZOLE MAGNESIUM D/R [Suspect]
     Active Substance: ESOMEPRAZOLE MAGNESIUM
     Dates: start: 201705, end: 20170602

REACTIONS (2)
  - Abdominal pain upper [Recovering/Resolving]
  - Pain [Recovering/Resolving]

NARRATIVE: CASE EVENT DATE: 201705
